FAERS Safety Report 7904096-1 (Version None)
Quarter: 2011Q4

REPORT INFORMATION
  Report Type: 
  Country: None (occurrence: None)
  Receive Date: 20111109
  Receipt Date: 20111103
  Transmission Date: 20120403
  Serious: Yes (Hospitalization, Other)
  Sender: FDA-Public Use
  Company Number: NZ-B.I. PHARMACEUTICALS,INC./RIDGEFIELD-2011-AU-00535AU

PATIENT
  Sex: Female
  Weight: 55 kg

DRUGS (9)
  1. PRADAXA [Suspect]
     Indication: SUPRAVENTRICULAR TACHYCARDIA
  2. NORTRIPTYLINE HCL [Concomitant]
     Dosage: 20 MG
     Dates: start: 20110712
  3. OMEPRAZOLE [Concomitant]
     Dosage: 20 MG
     Dates: start: 20090205
  4. SYMBICORT [Concomitant]
     Dosage: 200-6
     Dates: start: 20020617
  5. AMIODARONE HCL [Concomitant]
     Dosage: 200 MG
     Dates: start: 20110704
  6. ASPIRIN [Concomitant]
     Route: 048
  7. CHOLECALCIFEROL [Concomitant]
     Dosage: 0.0417 MG
     Dates: start: 20060308
  8. PRADAXA [Suspect]
     Indication: ATRIAL FLUTTER
     Dosage: 220 MG
     Route: 048
     Dates: start: 20110701, end: 20110704
  9. AMIODARONE HCL [Concomitant]
     Dosage: 600 MG
     Dates: start: 20110701

REACTIONS (3)
  - RECTAL HAEMORRHAGE [None]
  - MELAENA [None]
  - COLON CANCER [None]
